FAERS Safety Report 19898563 (Version 1)
Quarter: 2021Q3

REPORT INFORMATION
  Report Type: Spontaneous
  Country: DE (occurrence: DE)
  Receive Date: 20210930
  Receipt Date: 20210930
  Transmission Date: 20211014
  Serious: No
  Sender: FDA-Public Use
  Company Number: DE-ALKEM LABORATORIES LIMITED-DE-ALKEM-2021-05618

PATIENT
  Age: 48 Year
  Sex: Female

DRUGS (14)
  1. AMITRIPTYLINE [Suspect]
     Active Substance: AMITRIPTYLINE
     Indication: ARTHRALGIA
     Dosage: UNK
     Route: 065
     Dates: start: 2017
  2. PREGABALIN. [Suspect]
     Active Substance: PREGABALIN
     Indication: ARTHRALGIA
     Dosage: UNK
     Route: 065
     Dates: start: 2017
  3. METAMIZOLE [Suspect]
     Active Substance: METAMIZOLE
     Indication: ARTHRALGIA
     Dosage: UNK
     Route: 065
     Dates: start: 2017
  4. TILIDINE [Suspect]
     Active Substance: TILIDINE
     Indication: ARTHRALGIA
     Dosage: UNK
     Route: 065
     Dates: start: 2017
  5. TRIMIPRAMINE MALEATE. [Suspect]
     Active Substance: TRIMIPRAMINE MALEATE
     Indication: ARTHRALGIA
     Dosage: UNK
     Route: 065
     Dates: start: 2017
  6. TETRAZEPAM [Suspect]
     Active Substance: TETRAZEPAM
     Indication: ARTHRALGIA
     Dosage: UNK
     Route: 065
     Dates: start: 2017
  7. DICLOFENAC POTASSIUM. [Suspect]
     Active Substance: DICLOFENAC POTASSIUM
     Indication: ARTHRALGIA
     Dosage: UNK
     Route: 065
     Dates: start: 2017
  8. LORAZEPAM. [Suspect]
     Active Substance: LORAZEPAM
     Indication: ARTHRALGIA
     Dosage: UNK
     Route: 065
     Dates: start: 2017
  9. TRAMADOL. [Suspect]
     Active Substance: TRAMADOL
     Indication: ARTHRALGIA
     Dosage: UNK
     Route: 065
     Dates: start: 2017
  10. CITALOPRAM [Suspect]
     Active Substance: CITALOPRAM HYDROBROMIDE
     Indication: ARTHRALGIA
     Dosage: UNK
     Route: 065
     Dates: start: 2017
  11. ESCITALOPRAM [Suspect]
     Active Substance: ESCITALOPRAM OXALATE
     Indication: ARTHRALGIA
     Dosage: UNK
     Route: 065
     Dates: start: 2017
  12. MORPHINE SULFATE. [Suspect]
     Active Substance: MORPHINE SULFATE
     Indication: ARTHRALGIA
     Dosage: UNK
     Route: 065
     Dates: start: 2017
  13. ETORICOXIB. [Suspect]
     Active Substance: ETORICOXIB
     Indication: ARTHRALGIA
     Dosage: UNK
     Route: 065
     Dates: start: 2017
  14. TAPENTADOL [Suspect]
     Active Substance: TAPENTADOL
     Indication: ARTHRALGIA
     Dosage: UNK
     Route: 065
     Dates: start: 2017

REACTIONS (2)
  - Product use in unapproved indication [Unknown]
  - Drug ineffective [Unknown]
